FAERS Safety Report 8223302-X (Version None)
Quarter: 2012Q1

REPORT INFORMATION
  Report Type: 
  Country: None (occurrence: None)
  Receive Date: 20120321
  Receipt Date: 20120306
  Transmission Date: 20120608
  Serious: Yes (Hospitalization)
  Sender: FDA-Public Use
  Company Number: JP-ROCHE-1047164

PATIENT
  Sex: Male

DRUGS (19)
  1. ACTEMRA [Suspect]
     Route: 041
     Dates: start: 20090410, end: 20090410
  2. LOXONIN [Concomitant]
     Indication: RHEUMATOID ARTHRITIS
     Route: 048
     Dates: start: 20081120
  3. ASPIRIN [Concomitant]
     Route: 048
  4. DORAL [Concomitant]
     Indication: INSOMNIA
     Route: 048
  5. ACTEMRA [Suspect]
     Indication: RHEUMATOID ARTHRITIS
     Route: 041
     Dates: start: 20081217, end: 20081217
  6. ACTEMRA [Suspect]
     Route: 041
     Dates: start: 20090114, end: 20090114
  7. ACTEMRA [Suspect]
     Route: 041
     Dates: start: 20100628
  8. RABEPRAZOLE SODIUM [Concomitant]
     Indication: PROPHYLAXIS
     Route: 048
     Dates: start: 20081120
  9. LASIX [Concomitant]
     Indication: HYPERTENSION
     Route: 048
  10. DIOVAN [Concomitant]
     Indication: HYPERTENSION
     Route: 048
  11. ACTEMRA [Suspect]
     Route: 041
     Dates: start: 20090313, end: 20090313
  12. PLAVIX [Concomitant]
     Route: 048
  13. ALOSENN [Concomitant]
     Indication: CONSTIPATION
     Dosage: TAKEN AS NEEDED : 0.5G/DAY
     Route: 048
  14. PURSENNID [Concomitant]
     Indication: CONSTIPATION
     Dosage: TAKEN AS NEEDED : 12MG/DAY
     Route: 048
  15. PREDNISOLONE [Concomitant]
     Indication: RHEUMATOID ARTHRITIS
     Route: 048
     Dates: start: 20081120, end: 20090428
  16. PREDNISOLONE [Concomitant]
     Route: 048
     Dates: start: 20090429
  17. BASEN [Concomitant]
     Indication: DIABETES MELLITUS
     Route: 048
  18. LENDORMIN D [Concomitant]
     Indication: INSOMNIA
     Dosage: TAKEN AS NEEDED : 0.25MG/DAY
     Route: 048
  19. ACTEMRA [Suspect]
     Route: 041
     Dates: start: 20090213, end: 20090213

REACTIONS (1)
  - FOOT AMPUTATION [None]
